FAERS Safety Report 7741728-5 (Version None)
Quarter: 2011Q3

REPORT INFORMATION
  Report Type: 
  Country: None (occurrence: None)
  Receive Date: 20110912
  Receipt Date: 20110831
  Transmission Date: 20111222
  Serious: Yes (Other)
  Sender: FDA-Public Use
  Company Number: US-BIOGENIDEC-2007BI012451

PATIENT
  Age: 61 Year
  Sex: Female

DRUGS (5)
  1. AVONEX [Suspect]
     Route: 030
     Dates: end: 20100101
  2. ORAL CONTRACEPTIVES [Concomitant]
  3. ADVIL LIQUI-GELS [Concomitant]
     Indication: BACK PAIN
  4. AVONEX [Suspect]
     Indication: MULTIPLE SCLEROSIS
     Route: 030
     Dates: start: 20020813
  5. VICODIN [Concomitant]
     Indication: INSOMNIA

REACTIONS (5)
  - BREAST CANCER IN SITU [None]
  - BACK PAIN [None]
  - CONSTIPATION [None]
  - COGNITIVE DISORDER [None]
  - DRUG SPECIFIC ANTIBODY PRESENT [None]
